FAERS Safety Report 6908998-4 (Version None)
Quarter: 2010Q3

REPORT INFORMATION
  Report Type: 
  Country: None (occurrence: None)
  Receive Date: 20100805
  Receipt Date: 20100727
  Transmission Date: 20110219
  Serious: Yes (Other)
  Sender: FDA-Public Use
  Company Number: US-CELGENEUS-163-20785-10072391

PATIENT
  Sex: Female

DRUGS (2)
  1. THALOMID [Suspect]
     Indication: BEHCET'S SYNDROME
     Route: 048
     Dates: start: 20010801
  2. THALOMID [Suspect]
     Route: 048
     Dates: start: 20040101

REACTIONS (1)
  - BLOOD HUMAN CHORIONIC GONADOTROPIN INCREASED [None]
